FAERS Safety Report 9852021 (Version 1)
Quarter: 2014Q1

REPORT INFORMATION
  Report Type: Spontaneous
  Country: US (occurrence: US)
  Receive Date: 20140129
  Receipt Date: 20140129
  Transmission Date: 20141002
  Serious: No
  Sender: FDA-Public Use
  Company Number: US-PFIZER INC-2014023693

PATIENT
  Sex: Female

DRUGS (1)
  1. GABAPENTIN [Suspect]
     Dosage: 800 MG, 3X/DAY
     Route: 048

REACTIONS (14)
  - Pollakiuria [Unknown]
  - Insomnia [Unknown]
  - Renal disorder [Unknown]
  - Back pain [Unknown]
  - Malaise [Unknown]
  - Nausea [Unknown]
  - Tension [Unknown]
  - Musculoskeletal stiffness [Unknown]
  - Pain in extremity [Unknown]
  - Muscle tightness [Unknown]
  - Drug ineffective [Unknown]
  - Poor quality drug administered [Unknown]
  - Product coating issue [Unknown]
  - Product solubility abnormal [Unknown]
